FAERS Safety Report 5957661-5 (Version None)
Quarter: 2008Q4

REPORT INFORMATION
  Report Type: 
  Country: None (occurrence: None)
  Receive Date: 20081119
  Receipt Date: 20081106
  Transmission Date: 20090506
  Serious: Yes (Other)
  Sender: FDA-Public Use
  Company Number: CA-JNJFOC-20081102044

PATIENT
  Sex: Male

DRUGS (1)
  1. EXTRA STRENGTH TYLENOL COLD DAYTIME [Suspect]
     Indication: NASOPHARYNGITIS
     Route: 048

REACTIONS (1)
  - HAEMATOCHEZIA [None]
